FAERS Safety Report 4456115-5 (Version None)
Quarter: 2004Q3

REPORT INFORMATION
  Report Type: 
  Country: None (occurrence: None)
  Receive Date: 20040920
  Receipt Date: 20040907
  Transmission Date: 20050211
  Serious: No
  Sender: FDA-Public Use
  Company Number: 04H-163-0272751-00

PATIENT
  Age: 39 Year
  Sex: Female
  Weight: 80 kg

DRUGS (8)
  1. LIDOCAINE HCL [Suspect]
     Indication: LOCAL ANAESTHESIA
     Dosage: TOTAL DOSE 58 MG/KG, 900 MG/L, SUBCUTANEOUS
     Route: 058
  2. FLURAZEPAM [Suspect]
     Indication: SEDATION
     Dosage: 30 MG, ONCE, PER ORAL
     Route: 048
  3. SERTRALINE HCL [Suspect]
     Indication: ANXIETY DISORDER
     Dosage: 200 MG, DAILY, PER ORAL
     Route: 048
  4. SERTRALINE HCL [Suspect]
     Indication: DEPRESSION
     Dosage: 200 MG, DAILY, PER ORAL
     Route: 048
  5. SERTRALINE HCL [Suspect]
     Indication: PANIC ATTACK
     Dosage: 200 MG, DAILY, PER ORAL
     Route: 048
  6. EPINEPHRINE [Concomitant]
  7. BICARBONATE [Concomitant]
  8. SODIUM CHLORIDE [Concomitant]

REACTIONS (7)
  - CONFUSIONAL STATE [None]
  - DRUG INTERACTION [None]
  - DRUG TOXICITY [None]
  - DYSARTHRIA [None]
  - GAIT DISTURBANCE [None]
  - NAUSEA [None]
  - VOMITING [None]
